FAERS Safety Report 25245140 (Version 2)
Quarter: 2025Q2

REPORT INFORMATION
  Report Type: Spontaneous
  Country: ID (occurrence: ID)
  Receive Date: 20250428
  Receipt Date: 20250501
  Transmission Date: 20250716
  Serious: Yes (Hospitalization, Other)
  Sender: PFIZER
  Company Number: ID-MLMSERVICE-20250418-PI484419-00270-1

PATIENT
  Age: 32 Year
  Sex: Male

DRUGS (2)
  1. METHYLPREDNISOLONE [Suspect]
     Active Substance: METHYLPREDNISOLONE
     Dosage: 8 MG, 1X/DAY
  2. MYCOPHENOLIC ACID [Concomitant]
     Active Substance: MYCOPHENOLIC ACID
     Indication: Nephrotic syndrome
     Dosage: 720 MG, 1X/DAY

REACTIONS (3)
  - Embolism arterial [Recovered/Resolved]
  - Peripheral arterial occlusive disease [Recovered/Resolved]
  - Leriche syndrome [Recovered/Resolved]
